FAERS Safety Report 7995356-7 (Version None)
Quarter: 2011Q4

REPORT INFORMATION
  Report Type: 
  Country: None (occurrence: None)
  Receive Date: 20111220
  Receipt Date: 20111213
  Transmission Date: 20120403
  Serious: Yes (Death, Other)
  Sender: FDA-Public Use
  Company Number: FI-ROCHE-1021860

PATIENT
  Sex: Male

DRUGS (5)
  1. AZATHIOPRINE [Suspect]
     Indication: RHEUMATOID ARTHRITIS
  2. SOLU-CORTEF INJECTABLE [Concomitant]
  3. MABTHERA [Suspect]
     Indication: RHEUMATOID ARTHRITIS
     Route: 042
     Dates: start: 20061214
  4. PREDNISONE [Suspect]
  5. PREDNISONE [Suspect]
     Indication: RHEUMATOID ARTHRITIS
     Route: 048

REACTIONS (4)
  - ABDOMINAL PAIN [None]
  - HEPATIC ENZYME INCREASED [None]
  - INFECTION [None]
  - ACUTE MYOCARDIAL INFARCTION [None]
